FAERS Safety Report 9727542 (Version 1)
Quarter: 2013Q4

REPORT INFORMATION
  Report Type: Spontaneous
  Country: DK (occurrence: FR)
  Receive Date: 20131203
  Receipt Date: 20131203
  Transmission Date: 20140711
  Serious: Yes (Hospitalization)
  Sender: FDA-Public Use
  Company Number: FR-FRI-1000051819

PATIENT
  Age: 80 Year
  Sex: Female
  Weight: 99 kg

DRUGS (9)
  1. ESCITALOPRAM [Suspect]
     Dosage: 1 DF
     Route: 048
  2. ELIQUIS [Interacting]
     Indication: THROMBOSIS PROPHYLAXIS
     Dosage: 2 DF
     Route: 048
     Dates: start: 20130822, end: 20130827
  3. LEVOTHYROX [Concomitant]
     Indication: HYPOTHYROIDISM
     Dosage: 37.5 MCG
     Route: 048
  4. COKENZEN [Concomitant]
     Indication: HYPERTENSION
     Dosage: 1 DF
     Route: 048
  5. OMEPRAZOLE [Concomitant]
     Indication: GASTROOESOPHAGEAL REFLUX DISEASE
     Dosage: 1 DF
     Route: 048
  6. SINGULAIR [Concomitant]
     Indication: ASTHMA
     Dosage: 1 DF
     Route: 048
  7. SERETIDE [Concomitant]
     Indication: ASTHMA
     Dosage: 2 DF
     Route: 055
  8. AIROMIR AUTOHALER [Concomitant]
     Indication: ASTHMA
     Dosage: 2 PUFFS
     Route: 055
  9. ALPRAZOLAM [Concomitant]
     Dosage: 1 DF
     Route: 048

REACTIONS (3)
  - Rectal haemorrhage [Recovered/Resolved]
  - Haematemesis [Recovered/Resolved]
  - Drug interaction [Recovered/Resolved]
